FAERS Safety Report 8363464-7 (Version None)
Quarter: 2012Q2

REPORT INFORMATION
  Report Type: 
  Country: None (occurrence: None)
  Receive Date: 20120516
  Receipt Date: 20120508
  Transmission Date: 20120825
  Serious: Yes (Other)
  Sender: FDA-Public Use
  Company Number: JP-JNJFOC-20120511046

PATIENT
  Age: 46 Year
  Sex: Female

DRUGS (9)
  1. TRAMADOL HYDROCHLORIDE/ACETAMINOPHEN [Suspect]
     Indication: PAIN
     Route: 048
  2. NEUROTROPIN [Concomitant]
     Indication: PAIN
     Dosage: ONCE DAILY
     Route: 048
     Dates: start: 20120110
  3. LANSOPRAZOLE [Concomitant]
     Indication: GASTROOESOPHAGEAL REFLUX DISEASE
     Dosage: ONCE DAILY
     Route: 048
     Dates: start: 20120110
  4. ALLEGRA [Concomitant]
     Indication: RHINITIS ALLERGIC
     Dosage: ONCE DAILY
     Route: 048
  5. LYRICA [Concomitant]
     Indication: PAIN
     Dosage: ONCE DAILY
     Route: 048
     Dates: start: 20120110, end: 20120312
  6. ACETAMINOPHEN [Concomitant]
     Indication: PAIN
     Dosage: ONCE DAILY
     Route: 048
     Dates: start: 20120110
  7. TRAMADOL HYDROCHLORIDE/ACETAMINOPHEN [Suspect]
     Dosage: 1 PER 1 DAY
     Route: 048
     Dates: start: 20120110, end: 20120309
  8. CELEBREX [Concomitant]
     Indication: PAIN
     Dosage: ONCE DAILY
     Route: 048
     Dates: start: 20120110
  9. TRAMADOL HYDROCHLORIDE/ACETAMINOPHEN [Suspect]
     Dosage: 1 PER 1 DAY
     Route: 048
     Dates: start: 20120313

REACTIONS (2)
  - ARTHRALGIA [None]
  - WITHDRAWAL SYNDROME [None]
